FAERS Safety Report 4485245-7 (Version None)
Quarter: 2004Q4

REPORT INFORMATION
  Report Type: 
  Country: None (occurrence: None)
  Receive Date: 20041026
  Receipt Date: 20040929
  Transmission Date: 20050328
  Serious: No
  Sender: FDA-Public Use
  Company Number: US-BRISTOL-MYERS SQUIBB COMPANY-12717336

PATIENT
  Age: 6 Decade
  Sex: Male

DRUGS (10)
  1. GLUCOPHAGE XR [Suspect]
     Indication: DIABETES MELLITUS NON-INSULIN-DEPENDENT
     Route: 048
     Dates: start: 20040901
  2. FLONASE [Concomitant]
  3. ADDERALL 20 [Concomitant]
  4. XANAX [Concomitant]
  5. CLARITIN-D [Concomitant]
  6. PROTONIX [Concomitant]
  7. METOCLOPRAMIDE [Concomitant]
  8. SINGULAIR [Concomitant]
  9. CHOLESTYRAMINE [Concomitant]
  10. INDERAL [Concomitant]

REACTIONS (2)
  - DIZZINESS [None]
  - HYPOGLYCAEMIA [None]
